FAERS Safety Report 7774735-7 (Version None)
Quarter: 2011Q3

REPORT INFORMATION
  Report Type: 
  Country: None (occurrence: None)
  Receive Date: 20110923
  Receipt Date: 20110919
  Transmission Date: 20111222
  Serious: Yes (Other)
  Sender: FDA-Public Use
  Company Number: CHPA2011NL01457

PATIENT
  Sex: Female

DRUGS (2)
  1. VITAMINS NOS [Concomitant]
     Dosage: UNK, UNK
     Route: 065
  2. OTRIVIN [Suspect]
     Indication: RESPIRATORY DISORDER
     Dosage: 4 DF, QD, FOR SEVERAL YEARS
     Route: 045
     Dates: start: 20060101

REACTIONS (12)
  - INCORRECT DRUG ADMINISTRATION DURATION [None]
  - DRY THROAT [None]
  - DRUG DEPENDENCE [None]
  - PROLONGED PREGNANCY [None]
  - HEADACHE [None]
  - WRONG TECHNIQUE IN DRUG USAGE PROCESS [None]
  - POSTPARTUM HAEMORRHAGE [None]
  - RETAINED PLACENTA OR MEMBRANES [None]
  - SINUSITIS [None]
  - PROLONGED LABOUR [None]
  - NASAL DRYNESS [None]
  - MATERNAL EXPOSURE DURING PREGNANCY [None]
